FAERS Safety Report 11411898 (Version 1)
Quarter: 2015Q3

REPORT INFORMATION
  Report Type: Spontaneous
  Country: US (occurrence: US)
  Receive Date: 20150824
  Receipt Date: 20150824
  Transmission Date: 20151125
  Serious: No
  Sender: FDA-Public Use
  Company Number: US-009507513-1508USA008492

PATIENT
  Sex: Male

DRUGS (3)
  1. ASMANEX [Suspect]
     Active Substance: MOMETASONE FUROATE
     Indication: ASTHMA
     Dosage: 2 INHALATIONS ONCE A DAY
     Route: 055
  2. IBUPROFEN. [Concomitant]
     Active Substance: IBUPROFEN
  3. JANTOVEN [Concomitant]
     Active Substance: WARFARIN SODIUM

REACTIONS (2)
  - Skin lesion [Not Recovered/Not Resolved]
  - Inappropriate schedule of drug administration [Unknown]
